FAERS Safety Report 10777428 (Version 1)
Quarter: 2015Q1

REPORT INFORMATION
  Report Type: Spontaneous
  Country: CO (occurrence: CO)
  Receive Date: 20150209
  Receipt Date: 20150209
  Transmission Date: 20150721
  Serious: Yes (Other)
  Sender: FDA-Public Use
  Company Number: CO-BAYER-2015-017864

PATIENT
  Age: 18 Year
  Sex: Female
  Weight: 75 kg

DRUGS (1)
  1. ULTRAVIST? 300 [Suspect]
     Active Substance: IOPROMIDE
     Indication: COMPUTERISED TOMOGRAM ABDOMEN
     Dosage: 75 ML, ONCE
     Dates: start: 20150205, end: 20150205

REACTIONS (7)
  - Eyelid oedema [None]
  - Urticaria [None]
  - Hypotension [None]
  - Dyspnoea [None]
  - Chest pain [None]
  - Hyperhidrosis [None]
  - Nasal discomfort [None]

NARRATIVE: CASE EVENT DATE: 20150205
